FAERS Safety Report 10083821 (Version 1)
Quarter: 2014Q2

REPORT INFORMATION
  Report Type: Spontaneous
  Country: FR (occurrence: FR)
  Receive Date: 20140417
  Receipt Date: 20140417
  Transmission Date: 20141212
  Serious: Yes (Hospitalization, Other)
  Sender: FDA-Public Use
  Company Number: FR-ASTRAZENECA-2014SE25198

PATIENT
  Age: 67 Year
  Sex: Male

DRUGS (6)
  1. CRESTOR [Suspect]
     Indication: DYSLIPIDAEMIA
     Route: 048
     Dates: start: 20140202, end: 20140309
  2. SPIRAMYCINE METRONIDAZOLE [Suspect]
     Indication: DENTAL CARE
     Route: 048
     Dates: start: 20140307, end: 20140308
  3. FLANID [Suspect]
     Indication: DENTAL CARE
     Route: 048
     Dates: start: 20140307, end: 20140308
  4. COTAREG [Concomitant]
  5. XELEVIA [Concomitant]
  6. PERMIXON [Concomitant]

REACTIONS (4)
  - Cholestasis [Recovering/Resolving]
  - Hepatitis [Recovered/Resolved]
  - Dyspepsia [Unknown]
  - Asthenia [Unknown]
